FAERS Safety Report 7477285-0 (Version None)
Quarter: 2011Q2

REPORT INFORMATION
  Report Type: 
  Country: None (occurrence: None)
  Receive Date: 20110513
  Receipt Date: 20110504
  Transmission Date: 20111010
  Serious: Yes (Hospitalization)
  Sender: FDA-Public Use
  Company Number: US-BIOGENIDEC-2011BI016957

PATIENT
  Age: 55 Year
  Sex: Male

DRUGS (1)
  1. AVONEX [Suspect]
     Indication: MULTIPLE SCLEROSIS
     Route: 030
     Dates: start: 20041008

REACTIONS (9)
  - FOOT FRACTURE [None]
  - ROAD TRAFFIC ACCIDENT [None]
  - COMA [None]
  - ILL-DEFINED DISORDER [None]
  - MUSCLE DISORDER [None]
  - MALNUTRITION [None]
  - CARDIAC ARREST [None]
  - INCONTINENCE [None]
  - MULTIPLE ALLERGIES [None]
